FAERS Safety Report 5570689-2 (Version None)
Quarter: 2007Q4

REPORT INFORMATION
  Report Type: 
  Country: None (occurrence: None)
  Receive Date: 20071221
  Receipt Date: 20071218
  Transmission Date: 20080405
  Serious: Yes (Other)
  Sender: FDA-Public Use
  Company Number: FR-WYE-G00805007

PATIENT
  Sex: Female

DRUGS (4)
  1. EFFEXOR [Suspect]
     Indication: BIPOLAR I DISORDER
     Dosage: UNKNOWN
     Route: 048
     Dates: end: 20070301
  2. TERCIAN [Suspect]
     Indication: BIPOLAR I DISORDER
     Dosage: UNKNOWN
     Route: 048
     Dates: end: 20070301
  3. LARGACTIL [Concomitant]
     Indication: BIPOLAR I DISORDER
     Route: 048
     Dates: start: 20070301, end: 20070501
  4. DEPAKOTE [Suspect]
     Indication: BIPOLAR I DISORDER
     Dosage: UNKNOWN
     Route: 048
     Dates: end: 20070301

REACTIONS (6)
  - DRUG EXPOSURE DURING PREGNANCY [None]
  - NECROSIS ISCHAEMIC [None]
  - PLACENTAL CHORIOANGIOMA [None]
  - PLACENTAL DISORDER [None]
  - PLACENTAL INFARCTION [None]
  - PLACENTAL NECROSIS [None]
